FAERS Safety Report 21118932 (Version 1)
Quarter: 2022Q3

REPORT INFORMATION
  Report Type: Spontaneous
  Country: US (occurrence: US)
  Receive Date: 20220722
  Receipt Date: 20220722
  Transmission Date: 20221027
  Serious: Yes (Other)
  Sender: FDA-Public Use
  Company Number: US-MSNLABS-2022MSNSPO00819

PATIENT

DRUGS (1)
  1. PREGABALIN [Suspect]
     Active Substance: PREGABALIN
     Indication: Neuropathy peripheral
     Dosage: THREE TABLETS EVERY EVENING
     Route: 065
     Dates: start: 20220610

REACTIONS (4)
  - Drug ineffective [Unknown]
  - Overdose [Unknown]
  - Product substitution issue [Unknown]
  - Product residue present [Unknown]

NARRATIVE: CASE EVENT DATE: 20220610
